FAERS Safety Report 19581227 (Version 1)
Quarter: 2021Q3

REPORT INFORMATION
  Report Type: Report from Study
  Country: MX (occurrence: MX)
  Receive Date: 20210719
  Receipt Date: 20210719
  Transmission Date: 20211014
  Serious: Yes (Life-Threatening, Hospitalization, Other)
  Sender: FDA-Public Use
  Company Number: NVSC2021MX162672

PATIENT
  Age: 35 Year
  Sex: Female
  Weight: 42 kg

DRUGS (1)
  1. ENTRESTO [Suspect]
     Active Substance: SACUBITRIL\VALSARTAN
     Indication: CARDIAC FAILURE
     Dosage: 1.5 DF (1 TABLET IN THE MORNING AND LATER HALF TABLET)
     Route: 048
     Dates: start: 201810

REACTIONS (5)
  - Nephrotic syndrome [Unknown]
  - Poor peripheral circulation [Not Recovered/Not Resolved]
  - Wrong technique in product usage process [Unknown]
  - Peptic ulcer [Recovered/Resolved]
  - Sleep disorder [Not Recovered/Not Resolved]

NARRATIVE: CASE EVENT DATE: 201810
